FAERS Safety Report 14111168 (Version 1)
Quarter: 2017Q4

REPORT INFORMATION
  Report Type: Spontaneous
  Country: US (occurrence: US)
  Receive Date: 20171020
  Receipt Date: 20171020
  Transmission Date: 20180321
  Serious: Yes (Other)
  Sender: FDA-Public Use
  Company Number: US-GLAXOSMITHKLINE-US2017159885

PATIENT
  Age: 68 Year
  Sex: Male

DRUGS (11)
  1. CRESTOR [Concomitant]
     Active Substance: ROSUVASTATIN CALCIUM
  2. ANORO ELLIPTA [Suspect]
     Active Substance: UMECLIDINIUM BROMIDE\VILANTEROL TRIFENATATE
     Indication: CHRONIC OBSTRUCTIVE PULMONARY DISEASE
     Dosage: 1 PUFF(S), UNK
     Route: 055
  3. XANAX [Concomitant]
     Active Substance: ALPRAZOLAM
     Dosage: UNK, PRN
  4. SPIRIVA [Suspect]
     Active Substance: TIOTROPIUM BROMIDE MONOHYDRATE
     Indication: CHRONIC OBSTRUCTIVE PULMONARY DISEASE
     Dosage: 1 PUFF(S), 1D
  5. ASPIRIN. [Concomitant]
     Active Substance: ASPIRIN
  6. ADVAIR DISKUS [Suspect]
     Active Substance: FLUTICASONE PROPIONATE\SALMETEROL XINAFOATE
     Indication: CHRONIC OBSTRUCTIVE PULMONARY DISEASE
     Dosage: 1 PUFF(S), BID
     Route: 055
     Dates: start: 2010, end: 201707
  7. LIALDA [Concomitant]
     Active Substance: MESALAMINE
  8. PRO-AIR (FLUTICASONE PROPIONATE) [Concomitant]
     Dosage: UNK, PRN
  9. LOSARTAN. [Concomitant]
     Active Substance: LOSARTAN
  10. MELATONIN [Concomitant]
     Active Substance: MELATONIN
  11. COREG [Concomitant]
     Active Substance: CARVEDILOL

REACTIONS (5)
  - Lung disorder [Not Recovered/Not Resolved]
  - Labelled drug-drug interaction medication error [Unknown]
  - Cholecystectomy [Recovering/Resolving]
  - Musculoskeletal stiffness [Not Recovered/Not Resolved]
  - Pain [Not Recovered/Not Resolved]

NARRATIVE: CASE EVENT DATE: 201707
